FAERS Safety Report 5106947-5 (Version None)
Quarter: 2006Q3

REPORT INFORMATION
  Report Type: 
  Country: None (occurrence: None)
  Receive Date: 20060913
  Receipt Date: 20060824
  Transmission Date: 20061208
  Serious: Yes (Other)
  Sender: FDA-Public Use
  Company Number: JP200608006137

PATIENT
  Age: 62 Year
  Sex: Female
  Weight: 64 kg

DRUGS (18)
  1. GEMZAR [Suspect]
     Indication: LUNG NEOPLASM MALIGNANT
     Dosage: 1700 MG, OTHER, INTRAVENOUS
     Route: 042
     Dates: start: 20060719
  2. NAVELBINE [Concomitant]
  3. KYTRIL (GRANISETRON) INJECTION [Concomitant]
  4. SULFAMETHOXAZOLE + TRIMETHOPRIM [Concomitant]
  5. PREDNISOLONE [Concomitant]
  6. FAMOTIDINE [Concomitant]
  7. CLARITHROMYCIN [Concomitant]
  8. ADONA (CARBAZOCHROME SODIUM SULFONATE) [Concomitant]
  9. TRANSAMIN (TRANEXAMIC ACID) [Concomitant]
  10. MAGNESIUM OXIDE (MAGNESIUM OXIDE) [Concomitant]
  11. PANTOSIN (PANTETHINE) POWDER [Concomitant]
  12. THEO-DUR [Concomitant]
  13. CLEANAL (FUDOSTEINE) [Concomitant]
  14. BIOFERMIN R (STREPTOCOCCUS FAECALIS) [Concomitant]
  15. MUCOSOLVAN (AMBROXOL HYDROCHLORIDE) [Concomitant]
  16. PURSENNID (SENNOSIDE A+B, SENNOSIDE A+B CALCIUM) [Concomitant]
  17. RHYTHMY (RILMAZAFONE) [Concomitant]
  18. FUNGIZONE [Concomitant]

REACTIONS (7)
  - ABDOMINAL DISTENSION [None]
  - ABDOMINAL PAIN [None]
  - ABDOMINAL SYMPTOM [None]
  - ANOREXIA [None]
  - OESOPHAGEAL CANDIDIASIS [None]
  - REFLUX OESOPHAGITIS [None]
  - WHITE BLOOD CELL COUNT DECREASED [None]
